FAERS Safety Report 4526577-3 (Version None)
Quarter: 2004Q4

REPORT INFORMATION
  Report Type: 
  Country: None (occurrence: None)
  Receive Date: 20041214
  Receipt Date: 20041203
  Transmission Date: 20050328
  Serious: Yes (Other)
  Sender: FDA-Public Use
  Company Number: JP-JNJFOC-20041201285

PATIENT
  Sex: Female

DRUGS (2)
  1. ITRIZOLE [Suspect]
     Route: 049
     Dates: start: 20041017, end: 20041121
  2. ITRIZOLE [Suspect]
     Indication: ONYCHOMYCOSIS
     Route: 049
     Dates: start: 20041017, end: 20041121

REACTIONS (1)
  - VENTRICULAR EXTRASYSTOLES [None]
